FAERS Safety Report 21240315 (Version 1)
Quarter: 2022Q3

REPORT INFORMATION
  Report Type: Spontaneous
  Country: US (occurrence: None)
  Receive Date: 20220819
  Receipt Date: 20220819
  Transmission Date: 20221026
  Serious: Yes (Hospitalization)
  Sender: FDA-Public Use
  Company Number: None

PATIENT
  Age: 85 Year
  Sex: Male
  Weight: 66.22 kg

DRUGS (8)
  1. CITROMA MAGNESIUM CITRATE [Suspect]
     Active Substance: MAGNESIUM CITRATE
     Indication: Constipation
     Dosage: OTHER QUANTITY : 1/2 BOTTLE (10FLOZ;?FREQUENCY : DAILY;?
     Route: 048
     Dates: end: 20220731
  2. ASPIRIN [Concomitant]
     Active Substance: ASPIRIN
  3. METFORMIN [Concomitant]
     Active Substance: METFORMIN HYDROCHLORIDE
  4. CARBIDOPA\LEVODOPA [Concomitant]
     Active Substance: CARBIDOPA\LEVODOPA
  5. TAMSULOSIN [Concomitant]
     Active Substance: TAMSULOSIN
  6. LEVOTHYROXINE [Concomitant]
     Active Substance: LEVOTHYROXINE
  7. METHAMPHETAMINE [Concomitant]
     Active Substance: METHAMPHETAMINE
  8. VITAMIN C [Concomitant]
     Active Substance: ASCORBIC ACID

REACTIONS (7)
  - Product quality issue [None]
  - Economic problem [None]
  - Blood urine present [None]
  - Constipation [None]
  - Enterococcal infection [None]
  - Escherichia infection [None]
  - Urinary tract infection [None]
